FAERS Safety Report 23395814 (Version 2)
Quarter: 2024Q1

REPORT INFORMATION
  Report Type: Spontaneous
  Country: FR (occurrence: FR)
  Receive Date: 20240112
  Receipt Date: 20240123
  Transmission Date: 20240409
  Serious: Yes (Other)
  Sender: FDA-Public Use
  Company Number: FR-002147023-NVSC2024FR006293

PATIENT
  Age: 46 Year
  Sex: Female

DRUGS (1)
  1. GILENYA [Suspect]
     Active Substance: FINGOLIMOD HYDROCHLORIDE
     Indication: Multiple sclerosis
     Dosage: 0.5 MG
     Route: 048
     Dates: start: 2016, end: 2023

REACTIONS (5)
  - Vulvovaginal warts [Recovered/Resolved]
  - Papilloma viral infection [Recovered/Resolved]
  - Anogenital warts [Recovered/Resolved]
  - Anal cancer stage 0 [Recovered/Resolved]
  - Papilloma [Unknown]

NARRATIVE: CASE EVENT DATE: 20210401
